FAERS Safety Report 13958481 (Version 1)
Quarter: 2017Q3

REPORT INFORMATION
  Report Type: Spontaneous
  Country: US (occurrence: US)
  Receive Date: 20170911
  Receipt Date: 20170911
  Transmission Date: 20171128
  Serious: Yes (Other)
  Sender: FDA-Public Use
  Company Number: US-ROCHE-1080095

PATIENT
  Sex: Male

DRUGS (1)
  1. RITUXAN [Suspect]
     Active Substance: RITUXIMAB
     Indication: VASCULITIS
     Route: 042
     Dates: start: 201201

REACTIONS (15)
  - Urticaria [Recovered/Resolved]
  - Toxicity to various agents [Unknown]
  - Dyspnoea [Unknown]
  - Incorrect dose administered [Unknown]
  - Hypoaesthesia [Unknown]
  - Diarrhoea [Recovered/Resolved]
  - Lung disorder [Unknown]
  - Renal disorder [Unknown]
  - Sensory loss [Unknown]
  - Onychomadesis [Unknown]
  - Pain in extremity [Unknown]
  - Disease progression [Unknown]
  - Peripheral swelling [Recovered/Resolved]
  - Microscopic polyangiitis [Unknown]
  - Neuropathy peripheral [Unknown]
